FAERS Safety Report 24583573 (Version 2)
Quarter: 2025Q2

REPORT INFORMATION
  Report Type: Spontaneous
  Country: JP (occurrence: JP)
  Receive Date: 20241106
  Receipt Date: 20250401
  Transmission Date: 20250717
  Serious: Yes (Life-Threatening, Other)
  Sender: GLAXOSMITHKLINE
  Company Number: JP-TAKEDA-2024TJP015763

PATIENT

DRUGS (3)
  1. ZEJULA [Suspect]
     Active Substance: NIRAPARIB
     Indication: Ovarian cancer
     Dosage: 200 MG, QD
     Route: 048
     Dates: start: 20210608, end: 20210810
  2. ZEJULA [Suspect]
     Active Substance: NIRAPARIB
     Indication: Platelet count decreased
     Dosage: 100 MG, QD
     Route: 048
     Dates: start: 20210817
  3. EDOXABAN TOSYLATE [Concomitant]
     Active Substance: EDOXABAN TOSYLATE
     Indication: Product used for unknown indication
     Route: 065

REACTIONS (1)
  - Chronic myeloid leukaemia [Recovering/Resolving]

NARRATIVE: CASE EVENT DATE: 20241025
